FAERS Safety Report 9759511 (Version 1)
Quarter: 2013Q4

REPORT INFORMATION
  Report Type: Spontaneous
  Country: GB (occurrence: GB)
  Receive Date: 20131216
  Receipt Date: 20131216
  Transmission Date: 20140711
  Serious: Yes (Hospitalization)
  Sender: FDA-Public Use
  Company Number: GB-NOVOPROD-394862

PATIENT
  Age: 26 Year
  Sex: Male

DRUGS (1)
  1. NOVOMIX 30 [Suspect]
     Indication: PRODUCT USED FOR UNKNOWN INDICATION
     Dosage: UNK
     Route: 065
     Dates: start: 20130902

REACTIONS (2)
  - Soft tissue injury [Unknown]
  - Hypoglycaemia [Unknown]
